FAERS Safety Report 10459467 (Version 1)
Quarter: 2014Q3

REPORT INFORMATION
  Report Type: Spontaneous
  Country: FR (occurrence: FR)
  Receive Date: 20140917
  Receipt Date: 20140917
  Transmission Date: 20150326
  Serious: Yes (Hospitalization)
  Sender: FDA-Public Use
  Company Number: FR-PFIZER INC-2014251857

PATIENT
  Age: 56 Year
  Sex: Female

DRUGS (2)
  1. ADVIL [Suspect]
     Active Substance: IBUPROFEN
     Indication: SINUSITIS
     Dosage: 400 MG, 3X/DAY
     Route: 048
     Dates: end: 20140227
  2. PYOSTACINE [Concomitant]
     Active Substance: PRISTINAMYCIN
     Dosage: 1 G, 2X/DAY

REACTIONS (2)
  - Sinusitis [Recovered/Resolved]
  - Pneumonia [Recovered/Resolved]

NARRATIVE: CASE EVENT DATE: 20140227
